FAERS Safety Report 14493096 (Version 1)
Quarter: 2018Q1

REPORT INFORMATION
  Report Type: Spontaneous
  Country: US (occurrence: US)
  Receive Date: 20180205
  Receipt Date: 20180205
  Transmission Date: 20180509
  Serious: Yes (Life-Threatening, Disabling)
  Sender: FDA-Public Use
  Company Number: None

PATIENT
  Sex: Female
  Weight: 62.1 kg

DRUGS (5)
  1. OMEGAS FROM FISH OIL [Concomitant]
  2. PROBIOTICS SUCH AS L. PLANATARUM [Concomitant]
  3. IBUPROFEN. [Suspect]
     Active Substance: IBUPROFEN
     Indication: PAIN MANAGEMENT
     Route: 048
     Dates: start: 20171201, end: 20171226
  4. LIQUID VITAMIN B COMPLEX [Concomitant]
  5. CAPHOSOL MOUTH RINSE [Concomitant]

REACTIONS (5)
  - Incorrect drug administration duration [None]
  - Atrial fibrillation [None]
  - Hypertension [None]
  - Palpitations [None]
  - Ventricular extrasystoles [None]

NARRATIVE: CASE EVENT DATE: 20171226
